FAERS Safety Report 9893706 (Version 1)
Quarter: 2014Q1

REPORT INFORMATION
  Report Type: Spontaneous
  Country: US (occurrence: ES)
  Receive Date: 20140213
  Receipt Date: 20140213
  Transmission Date: 20141002
  Serious: Yes (Hospitalization)
  Sender: FDA-Public Use
  Company Number: ES-FRI-1000054193

PATIENT
  Age: 70 Year
  Sex: Male
  Weight: 85 kg

DRUGS (4)
  1. ROFLUMILAST [Suspect]
     Indication: CHRONIC OBSTRUCTIVE PULMONARY DISEASE
     Dosage: 500 MCG
     Route: 048
     Dates: start: 2012
  2. FOSTER [Concomitant]
     Dates: start: 1999
  3. VENTOLIN [Concomitant]
  4. OTHER THERAPEUTIC PRODUCTS [Concomitant]

REACTIONS (2)
  - Pneumonia [Recovered/Resolved]
  - Weight decreased [Recovered/Resolved]
